FAERS Safety Report 16191231 (Version 2)
Quarter: 2019Q2

REPORT INFORMATION
  Report Type: Report from Study
  Country: US (occurrence: US)
  Receive Date: 20190412
  Receipt Date: 20190516
  Transmission Date: 20190711
  Serious: Yes (Death, Hospitalization)
  Sender: FDA-Public Use
  Company Number: US-ACTELION-A-US2019-185797

PATIENT
  Age: 68 Year
  Sex: Female

DRUGS (6)
  1. TRACLEER [Suspect]
     Active Substance: BOSENTAN
     Dosage: 125 MG, BID
     Route: 048
     Dates: start: 20100924
  2. REMODULIN [Concomitant]
     Active Substance: TREPROSTINIL
     Route: 042
  3. ORENITRAM [Concomitant]
     Active Substance: TREPROSTINIL
  4. TRACLEER [Suspect]
     Active Substance: BOSENTAN
     Dosage: UNK
     Route: 048
  5. TRACLEER [Suspect]
     Active Substance: BOSENTAN
     Indication: PULMONARY ARTERIAL HYPERTENSION
     Dosage: 62.5 MG, BID
     Route: 048
     Dates: start: 20160317
  6. UPTRAVI [Suspect]
     Active Substance: SELEXIPAG
     Indication: PULMONARY ARTERIAL HYPERTENSION
     Route: 048

REACTIONS (4)
  - Condition aggravated [Fatal]
  - Pulmonary arterial hypertension [Fatal]
  - Respiratory failure [Fatal]
  - Right ventricular failure [Fatal]

NARRATIVE: CASE EVENT DATE: 20190218
